FAERS Safety Report 9820401 (Version 1)
Quarter: 2013Q4

REPORT INFORMATION
  Report Type: Spontaneous
  Country: US (occurrence: None)
  Receive Date: 20131028
  Receipt Date: 20131028
  Transmission Date: 20140711
  Serious: Yes (Other)
  Sender: FDA-Public Use
  Company Number: 2013US001554

PATIENT
  Age: 63 Year
  Sex: Female
  Weight: 85 kg

DRUGS (7)
  1. ICLUSIG [Suspect]
     Indication: CHRONIC MYELOID LEUKAEMIA
     Route: 048
     Dates: start: 20130418, end: 20130420
  2. NEXIUM I.V. [Concomitant]
  3. SYNTHROID (LEVOTHYROXINE SODIUM) [Concomitant]
  4. POTASSIUM (POTASSIUM) [Concomitant]
  5. LASIX (FUROSEMIDE) [Concomitant]
  6. CELEXA (CITALOPRAM HYDROBROMIDE) [Concomitant]
  7. OXYCODONE (OXYCODONE) [Concomitant]

REACTIONS (5)
  - Pancreatitis [None]
  - Abdominal distension [None]
  - Liver function test abnormal [None]
  - Abdominal pain upper [None]
  - Headache [None]
